FAERS Safety Report 4565188-0 (Version None)
Quarter: 2005Q1

REPORT INFORMATION
  Report Type: 
  Country: None (occurrence: None)
  Receive Date: 20050127
  Receipt Date: 20050127
  Transmission Date: 20050727
  Serious: Yes (Hospitalization)
  Sender: FDA-Public Use
  Company Number: None

PATIENT
  Age: 52 Year
  Sex: Male
  Weight: 87.5442 kg

DRUGS (8)
  1. TRISENOX [Suspect]
     Indication: MULTIPLE MYELOMA
     Dosage: 22MG QD IV X 4 D
     Route: 042
     Dates: start: 20050118, end: 20050121
  2. MELPHALAN 9 MG [Suspect]
     Dosage: 9 MG QD PO X 4 D
     Route: 048
     Dates: start: 20050118, end: 20050121
  3. ALLOPURINOL [Concomitant]
  4. NORVASC [Concomitant]
  5. LOPRESSOR [Concomitant]
  6. VANCOMYCIN [Concomitant]
  7. ASCORBIC ACID [Concomitant]
  8. ZOFRAN [Concomitant]

REACTIONS (2)
  - ATELECTASIS [None]
  - PANCREATITIS ACUTE [None]
